FAERS Safety Report 7792284 (Version 6)
Quarter: 2014Q2

REPORT INFORMATION
  Report Type: Report from Study
  Country: JP (occurrence: JP)
  Receive Date: 20110131
  Receipt Date: 20140505
  Transmission Date: 20141212
  Serious: Yes (Life-Threatening, Hospitalization, Other)
  Sender: FDA-Public Use
  Company Number: JP-PFIZER INC-2010081936

PATIENT
  Age: 61 Year
  Sex: Female
  Weight: 53 kg

DRUGS (15)
  1. PLACEBO [Suspect]
     Indication: RHEUMATOID ARTHRITIS
     Dosage: 0 MG, 2X/DAY
     Route: 048
     Dates: start: 20100215, end: 20100630
  2. METHOTREXATE SODIUM [Suspect]
     Indication: RHEUMATOID ARTHRITIS
     Dosage: 12.5 MG, WEEKLY
     Route: 048
     Dates: start: 20070730, end: 20090303
  3. METHOTREXATE SODIUM [Suspect]
     Dosage: 15 MG, WEEKLY
     Route: 048
     Dates: start: 20090309, end: 20091215
  4. METHOTREXATE SODIUM [Suspect]
     Dosage: 10 MG, WEEKLY
     Route: 048
     Dates: start: 20091221, end: 20100628
  5. NORVASC [Suspect]
     Dosage: 5 MG, 1X/DAY
     Route: 048
     Dates: start: 20091024
  6. FOLIAMIN [Suspect]
     Indication: RHEUMATOID ARTHRITIS
     Dosage: 5 MG, WEEKLY
     Route: 048
     Dates: start: 20090826, end: 20100629
  7. ALFAROL [Suspect]
     Indication: OSTEOPOROSIS
     Dosage: 0.25 UG, 1X/DAY
     Route: 048
     Dates: start: 20041028
  8. OMEPRAL [Suspect]
     Indication: GASTRITIS PROPHYLAXIS
     Dosage: 10 MG, 1X/DAY
     Route: 048
     Dates: start: 20070629
  9. MICARDIS [Suspect]
     Indication: HYPERTENSION
     Dosage: 40 MG, 1X/DAY
     Route: 048
     Dates: start: 20080620, end: 20100906
  10. METHYCOBAL [Suspect]
     Indication: MENIERE^S DISEASE
     Dosage: UNK, AS NEEDED
     Route: 048
     Dates: start: 2008
  11. ADETPHOS [Suspect]
     Indication: MENIERE^S DISEASE
     Dosage: UNK, AS NEEDED
     Route: 048
     Dates: start: 2008
  12. CEPHADOL [Suspect]
     Indication: MENIERE^S DISEASE
     Dosage: UNK, AS NEEDED
     Route: 048
     Dates: start: 2008
  13. HYALEIN [Suspect]
     Indication: DRY EYE
     Dosage: UNK, 4X/DAY
     Route: 031
     Dates: start: 2009
  14. CRAVIT [Suspect]
     Indication: CONJUNCTIVITIS ALLERGIC
     Dosage: UNK, 3X/DAY
     Route: 031
     Dates: start: 2009
  15. FLUMETHOLON [Suspect]
     Indication: CONJUNCTIVITIS ALLERGIC
     Dosage: UNK, 3X/DAY
     Route: 031
     Dates: start: 2009

REACTIONS (1)
  - Basal cell carcinoma [Recovering/Resolving]
